FAERS Safety Report 17595317 (Version 1)
Quarter: 2020Q1

REPORT INFORMATION
  Report Type: Report from Study
  Country: GB (occurrence: GB)
  Receive Date: 20200329
  Receipt Date: 20200329
  Transmission Date: 20200409
  Serious: Yes (Hospitalization)
  Sender: FDA-Public Use
  Company Number: GB-AMGEN-GBRSL2020048560

PATIENT
  Age: 38 Year
  Sex: Male

DRUGS (1)
  1. AMGEVITA [Suspect]
     Active Substance: ADALIMUMAB
     Indication: PRODUCT USED FOR UNKNOWN INDICATION
     Dosage: 40 MILLIGRAM
     Route: 065
     Dates: start: 20200319

REACTIONS (4)
  - Paraesthesia oral [Unknown]
  - Dyspnoea [Unknown]
  - Hypoaesthesia oral [Unknown]
  - Dry throat [Unknown]

NARRATIVE: CASE EVENT DATE: 20200319
